FAERS Safety Report 5406307-3 (Version None)
Quarter: 2007Q3

REPORT INFORMATION
  Report Type: 
  Country: None (occurrence: None)
  Receive Date: 20070806
  Receipt Date: 20070615
  Transmission Date: 20080115
  Serious: Yes (Death)
  Sender: FDA-Public Use
  Company Number: US-BRISTOL-MYERS SQUIBB COMPANY-13866306

PATIENT

DRUGS (2)
  1. BARACLUDE [Suspect]
  2. HEPSERA [Concomitant]

REACTIONS (1)
  - LACTIC ACIDOSIS [None]
